FAERS Safety Report 5081598-X (Version None)
Quarter: 2006Q3

REPORT INFORMATION
  Report Type: 
  Country: None (occurrence: None)
  Receive Date: 20060810
  Receipt Date: 20060727
  Transmission Date: 20061208
  Serious: Yes (Hospitalization, Other)
  Sender: FDA-Public Use
  Company Number: US016787

PATIENT
  Age: 76 Year
  Sex: Female

DRUGS (4)
  1. ARSENIC TRIOXIDE [Suspect]
     Indication: ACUTE PROMYELOCYTIC LEUKAEMIA
     Dosage: 9.285 MG QD INTRAVENOUS DRIP
     Route: 041
     Dates: start: 20051228, end: 20060119
  2. CEFPIROME SULFATE [Suspect]
     Dosage: 3 G QD INTRAVENOUS DRIP
     Route: 041
     Dates: start: 20060117
  3. MICAFUNGIN SODIUM [Suspect]
     Dosage: 150 MG QD INTRAVENOUS DRIP
     Route: 041
     Dates: start: 20060120
  4. ACYCLOVIR [Suspect]
     Dosage: 750 MG QD INTRAVENOUS DRIP
     Route: 041
     Dates: start: 20060120, end: 20060126

REACTIONS (10)
  - ACUTE PROMYELOCYTIC LEUKAEMIA DIFFERENTIATION SYNDROME [None]
  - ALANINE AMINOTRANSFERASE INCREASED [None]
  - ASPARTATE AMINOTRANSFERASE INCREASED [None]
  - BLOOD ALBUMIN DECREASED [None]
  - BLOOD ALKALINE PHOSPHATASE INCREASED [None]
  - BLOOD FIBRINOGEN INCREASED [None]
  - BLOOD LACTATE DEHYDROGENASE INCREASED [None]
  - FIBRIN D DIMER INCREASED [None]
  - GAMMA-GLUTAMYLTRANSFERASE INCREASED [None]
  - PROTEIN TOTAL DECREASED [None]
